FAERS Safety Report 26025775 (Version 1)
Quarter: 2025Q4

REPORT INFORMATION
  Report Type: Spontaneous
  Country: US (occurrence: US)
  Receive Date: 20251111
  Receipt Date: 20251111
  Transmission Date: 20260119
  Serious: Yes (Other)
  Sender: BAYER HEALTHCARE LLC
  Company Number: US-BAYER-2025A148517

PATIENT
  Age: 67 Year
  Sex: Male

DRUGS (1)
  1. ASPIRIN [Suspect]
     Active Substance: ASPIRIN
     Indication: Dysuria
     Dosage: 1000 MG

REACTIONS (5)
  - Haemolytic anaemia [None]
  - Shock haemorrhagic [None]
  - Pulmonary alveolar haemorrhage [None]
  - Haemoptysis [None]
  - Self-medication [None]
